FAERS Safety Report 5213674-2 (Version None)
Quarter: 2007Q1

REPORT INFORMATION
  Report Type: 
  Country: None (occurrence: None)
  Receive Date: 20070119
  Receipt Date: 20070109
  Transmission Date: 20070707
  Serious: Yes (Other)
  Sender: FDA-Public Use
  Company Number: US-PFIZER INC-2007003719

PATIENT
  Sex: Male

DRUGS (5)
  1. NEURONTIN [Suspect]
     Indication: DIABETIC NEUROPATHY
  2. LIPITOR [Concomitant]
  3. NEXIUM [Concomitant]
  4. ACCUPRIL [Concomitant]
  5. INSULIN [Concomitant]
     Indication: DIABETES MELLITUS INSULIN-DEPENDENT

REACTIONS (6)
  - ACTIVITIES OF DAILY LIVING IMPAIRED [None]
  - BALANCE DISORDER [None]
  - CLUMSINESS [None]
  - FALL [None]
  - GAIT DISTURBANCE [None]
  - SPINAL FRACTURE [None]
